FAERS Safety Report 18650935 (Version 3)
Quarter: 2021Q1

REPORT INFORMATION
  Report Type: Report from Study
  Country: UA (occurrence: UA)
  Receive Date: 20201222
  Receipt Date: 20210205
  Transmission Date: 20210419
  Serious: No
  Sender: FDA-Public Use
  Company Number: UA-ALLERGAN-2049214US

PATIENT
  Age: 47 Year
  Sex: Male
  Weight: 92.7 kg

DRUGS (3)
  1. CARIPRAZINE HCL 4.5MG CAP (TBD) [Suspect]
     Active Substance: CARIPRAZINE HYDROCHLORIDE
     Dosage: 3 MG, QD
     Route: 048
     Dates: start: 20201026, end: 20201101
  2. CARIPRAZINE HCL 4.5MG CAP (TBD) [Suspect]
     Active Substance: CARIPRAZINE HYDROCHLORIDE
     Dosage: 1.5 MG, QD
     Route: 048
     Dates: start: 20201019, end: 20201025
  3. CARIPRAZINE HCL 4.5MG CAP (TBD) [Suspect]
     Active Substance: CARIPRAZINE HYDROCHLORIDE
     Indication: SCHIZOPHRENIA
     Dosage: 4.5 MG, QD
     Route: 048
     Dates: start: 20201102, end: 20201214

REACTIONS (2)
  - Visual acuity reduced [Recovered/Resolved]
  - Retinal artery spasm [Recovered/Resolved]

NARRATIVE: CASE EVENT DATE: 20201216
